FAERS Safety Report 18175579 (Version 1)
Quarter: 2020Q3

REPORT INFORMATION
  Report Type: Spontaneous
  Country: CN (occurrence: CN)
  Receive Date: 20200820
  Receipt Date: 20200820
  Transmission Date: 20201103
  Serious: Yes (Hospitalization, Other)
  Sender: FDA-Public Use
  Company Number: CN-PFIZER INC-2020317655

PATIENT
  Age: 66 Year
  Sex: Male
  Weight: 65 kg

DRUGS (3)
  1. SOLU?MEDROL [Suspect]
     Active Substance: METHYLPREDNISOLONE SODIUM SUCCINATE
     Indication: MUSCLE SPASMS
     Dosage: 40 MG, 1X/DAY
     Route: 041
     Dates: start: 20200704, end: 202007
  2. SOLU?MEDROL [Suspect]
     Active Substance: METHYLPREDNISOLONE SODIUM SUCCINATE
     Indication: ASTHMA
     Dosage: 80 MG, 2X/DAY
     Route: 041
     Dates: start: 20200711, end: 202007
  3. SOLU?MEDROL [Suspect]
     Active Substance: METHYLPREDNISOLONE SODIUM SUCCINATE
     Dosage: 40 MG, 2X/DAY
     Route: 041
     Dates: start: 20200715, end: 202007

REACTIONS (2)
  - Occult blood positive [Recovering/Resolving]
  - Stress ulcer [Recovering/Resolving]

NARRATIVE: CASE EVENT DATE: 20200708
